FAERS Safety Report 8283612-7 (Version None)
Quarter: 2012Q2

REPORT INFORMATION
  Report Type: 
  Country: None (occurrence: None)
  Receive Date: 20120413
  Receipt Date: 20120402
  Transmission Date: 20120825
  Serious: Yes (Hospitalization)
  Sender: FDA-Public Use
  Company Number: JP-B.I. PHARMACEUTICALS,INC./RIDGEFIELD-2012-BP-05006NB

PATIENT
  Sex: Female
  Weight: 78.2 kg

DRUGS (21)
  1. ASPIRIN [Concomitant]
     Dosage: 100 MG
     Route: 048
  2. FAMOTIDINE D [Concomitant]
     Indication: PROPHYLAXIS
     Dosage: 10 MG
     Route: 048
     Dates: end: 20111130
  3. AMLODIPINE [Concomitant]
     Dosage: 5 MG
     Route: 048
  4. BROTIZOLAM [Suspect]
     Dosage: 0.25 MG
     Route: 048
     Dates: start: 20110720, end: 20120217
  5. CARVEDILOL [Concomitant]
     Dosage: 2.5 MG
     Route: 048
     Dates: start: 20110622, end: 20111228
  6. RASILEZ [Concomitant]
     Dosage: 150 MG
     Route: 048
     Dates: start: 20111005, end: 20120217
  7. MICARDIS [Concomitant]
     Dosage: 40 MG
     Route: 048
     Dates: end: 20110118
  8. RENAGEL [Concomitant]
     Dosage: 3000 MG
     Route: 048
  9. LANSORAL [Concomitant]
     Indication: PROPHYLAXIS
     Dosage: 15 MG
     Route: 048
     Dates: start: 20111130
  10. ALEROFF [Concomitant]
     Dosage: 20 MG
     Route: 048
     Dates: start: 20110810, end: 20111102
  11. REMITCH [Suspect]
     Dosage: 5 MCG
     Route: 048
     Dates: start: 20111209, end: 20120217
  12. CINACALCET HYDROCHLORIDE [Concomitant]
     Dosage: 25 MG
     Route: 048
     Dates: start: 20111221
  13. PRAMIPEXOLE DIHYDROCHLORIDE [Suspect]
     Indication: RESTLESS LEGS SYNDROME
     Dosage: 0.25 MG
     Route: 048
     Dates: start: 20110105, end: 20120213
  14. LIPOCLIN [Concomitant]
     Dosage: 600 MG
     Route: 048
  15. ETICALM [Suspect]
     Route: 048
     Dates: end: 20120217
  16. FOSRENOL [Concomitant]
     Dosage: 500 MG
     Route: 048
  17. PIROAN [Concomitant]
     Dosage: 75 MG
     Route: 048
  18. AZEPIT [Suspect]
     Dosage: 4 MG
     Route: 048
     Dates: start: 20111031, end: 20120217
  19. MICAMLO COMBINATION TABLETS AP [Concomitant]
     Route: 048
     Dates: start: 20110119
  20. FERROUS CITRATE [Concomitant]
     Dosage: 50 MG
     Route: 048
     Dates: start: 20110323
  21. ARTIONE [Concomitant]
     Dosage: 10 MG
     Route: 048
     Dates: start: 20111228

REACTIONS (5)
  - SUPRAVENTRICULAR TACHYCARDIA [None]
  - SOMATIC HALLUCINATION [None]
  - PRURITUS [None]
  - DIABETES MELLITUS [None]
  - DRUG INTERACTION [None]
